FAERS Safety Report 18683046 (Version 4)
Quarter: 2021Q1

REPORT INFORMATION
  Report Type: Spontaneous
  Country: GB (occurrence: GB)
  Receive Date: 20201230
  Receipt Date: 20210328
  Transmission Date: 20210419
  Serious: Yes (Disabling, Other)
  Sender: FDA-Public Use
  Company Number: GB-ADVANZ PHARMA-202012011048

PATIENT

DRUGS (8)
  1. MOMETASONE FUROATE. [Suspect]
     Active Substance: MOMETASONE FUROATE
     Indication: ECZEMA
     Dosage: 2 X 100 GRAM TUBES
     Route: 061
     Dates: start: 20170710, end: 20180419
  2. SERETIDE [Concomitant]
     Active Substance: FLUTICASONE PROPIONATE\SALMETEROL XINAFOATE
     Dosage: UNK
  3. SALBUTAMOL [Concomitant]
     Active Substance: ALBUTEROL
     Dosage: UNK
  4. CLOBETASONE BUTYRATE [Suspect]
     Active Substance: CLOBETASONE BUTYRATE
     Indication: ECZEMA
     Dosage: 100 GRAMS
     Route: 061
     Dates: start: 20170421
  5. PREDNISOLONE. [Suspect]
     Active Substance: PREDNISOLONE
     Indication: ECZEMA
     Dosage: 6 DOSAGE FORM, QD, TABLET (42 TABLETS)
     Route: 048
     Dates: start: 20170526
  6. PREDNISONE. [Suspect]
     Active Substance: PREDNISONE
     Indication: ECZEMA
     Dosage: 200 MILLIGRAM
     Route: 048
     Dates: start: 20170703, end: 20170708
  7. EUMOVATE [Suspect]
     Active Substance: CLOBETASONE BUTYRATE
     Indication: ECZEMA
     Dosage: 100 GRAMS
     Route: 061
     Dates: start: 20180215, end: 20180419
  8. SERETIDE [Concomitant]
     Active Substance: FLUTICASONE PROPIONATE\SALMETEROL XINAFOATE
     Dosage: UNK

REACTIONS (20)
  - Skin weeping [Unknown]
  - Dermatitis exfoliative generalised [Recovered/Resolved with Sequelae]
  - Hyperaesthesia [Recovered/Resolved with Sequelae]
  - Chills [Recovered/Resolved]
  - Dermatitis [Unknown]
  - Peripheral swelling [Recovered/Resolved]
  - Menstruation delayed [Recovered/Resolved]
  - Steroid withdrawal syndrome [Recovered/Resolved with Sequelae]
  - Lymphadenopathy [Recovered/Resolved]
  - Skin texture abnormal [Unknown]
  - Skin wrinkling [Recovered/Resolved with Sequelae]
  - Alopecia [Recovered/Resolved]
  - Pruritus [Recovered/Resolved]
  - Dry skin [Unknown]
  - Skin hypertrophy [Unknown]
  - Fluid retention [Unknown]
  - Skin exfoliation [Recovered/Resolved with Sequelae]
  - Skin warm [Unknown]
  - Skin fissures [Unknown]
  - Erythema [Recovered/Resolved with Sequelae]

NARRATIVE: CASE EVENT DATE: 20180401
